FAERS Safety Report 18045715 (Version 7)
Quarter: 2021Q4

REPORT INFORMATION
  Report Type: Report from Study
  Country: US (occurrence: US)
  Receive Date: 20200720
  Receipt Date: 20211111
  Transmission Date: 20220303
  Serious: Yes (Hospitalization, Other)
  Sender: FDA-Public Use
  Company Number: US-SHIRE-US202023034

PATIENT
  Age: 79 Year
  Sex: Female
  Weight: 100 kg

DRUGS (35)
  1. HUMAN IMMUNOGLOBULIN G [Suspect]
     Active Substance: HUMAN IMMUNOGLOBULIN G
     Indication: Immunodeficiency common variable
     Dosage: 22 GRAM, Q2WEEKS
     Route: 058
     Dates: start: 20170906
  2. MODERNA COVID-19 VACCINE [Suspect]
     Active Substance: CX-024414
     Indication: Product used for unknown indication
     Dosage: UNK
     Route: 065
     Dates: start: 20210827
  3. ACETAMINOPHEN [Concomitant]
     Active Substance: ACETAMINOPHEN
  4. DIPHENHYDRAMINE [Concomitant]
     Active Substance: DIPHENHYDRAMINE
  5. LIDOCAINE [Concomitant]
     Active Substance: LIDOCAINE
  6. FAMOTIDINE [Concomitant]
     Active Substance: FAMOTIDINE
  7. EPINEPHRINE [Concomitant]
     Active Substance: EPINEPHRINE
  8. VALSARTAN [Concomitant]
     Active Substance: VALSARTAN
  9. BYSTOLIC [Concomitant]
     Active Substance: NEBIVOLOL HYDROCHLORIDE
  10. HYOSCYAMINE [Concomitant]
     Active Substance: HYOSCYAMINE
  11. FENOFIBRATE [Concomitant]
     Active Substance: FENOFIBRATE
  12. ASPIRIN [Concomitant]
     Active Substance: ASPIRIN
  13. FISH OIL [Concomitant]
     Active Substance: FISH OIL
  14. SYMBICORT [Concomitant]
     Active Substance: BUDESONIDE\FORMOTEROL FUMARATE DIHYDRATE
  15. CLONIDINE [Concomitant]
     Active Substance: CLONIDINE
  16. ZYRTEC [Concomitant]
     Active Substance: CETIRIZINE HYDROCHLORIDE
  17. POTASSIUM CHLORIDE [Concomitant]
     Active Substance: POTASSIUM CHLORIDE
  18. VITAMIN C [Concomitant]
     Active Substance: ASCORBIC ACID
  19. HYDRALAZINE [Concomitant]
     Active Substance: HYDRALAZINE HYDROCHLORIDE
  20. VITAMIN B COMPLEX [Concomitant]
     Active Substance: CYANOCOBALAMIN\DEXPANTHENOL\NIACINAMIDE\PYRIDOXINE HYDROCHLORIDE\RIBOFLAVIN 5^-PHOSPHATE SODIUM\THIA
  21. COENZYME Q10 [Concomitant]
     Active Substance: DIETARY SUPPLEMENT\UBIDECARENONE
  22. VITAMINS [Concomitant]
     Active Substance: VITAMINS
  23. XOPENEX [Concomitant]
     Active Substance: LEVALBUTEROL HYDROCHLORIDE
  24. METFORMIN [Concomitant]
     Active Substance: METFORMIN HYDROCHLORIDE
  25. VITAMIN E NATURAL [TOCOPHEROL] [Concomitant]
  26. VITAMIN E [Concomitant]
     Active Substance: .ALPHA.-TOCOPHEROL
  27. BENADRYL ALLERGY [Concomitant]
     Active Substance: DIPHENHYDRAMINE HYDROCHLORIDE
  28. TYLENOL ARTHRITIS PAIN [Concomitant]
     Active Substance: ACETAMINOPHEN
  29. LEVOFLOXACIN [Concomitant]
     Active Substance: LEVOFLOXACIN
     Route: 065
  30. METRONIDAZOLE [Concomitant]
     Active Substance: METRONIDAZOLE
     Route: 065
  31. FUROSEMIDE [Concomitant]
     Active Substance: FUROSEMIDE
     Route: 065
  32. PULMICORT TURBUHALER [Concomitant]
     Active Substance: BUDESONIDE
  33. PANTOPRAZOLE [Concomitant]
     Active Substance: PANTOPRAZOLE
  34. BROVANA [Concomitant]
     Active Substance: ARFORMOTEROL TARTRATE
  35. LEVALBUTEROL [Concomitant]
     Active Substance: LEVALBUTEROL

REACTIONS (13)
  - Lung disorder [Unknown]
  - Pulmonary thrombosis [Unknown]
  - Asthma [Unknown]
  - Musculoskeletal discomfort [Unknown]
  - Blood pressure increased [Unknown]
  - Chest discomfort [Unknown]
  - Sinusitis [Unknown]
  - Bronchitis [Unknown]
  - COVID-19 immunisation [Unknown]
  - Ear infection [Unknown]
  - Pharyngitis [Unknown]
  - Arthralgia [Unknown]
  - Drug hypersensitivity [Unknown]

NARRATIVE: CASE EVENT DATE: 20210827
